FAERS Safety Report 5043892-8 (Version None)
Quarter: 2006Q2

REPORT INFORMATION
  Report Type: 
  Country: None (occurrence: None)
  Receive Date: 20060629
  Receipt Date: 20060613
  Transmission Date: 20061013
  Serious: Yes (Hospitalization)
  Sender: FDA-Public Use
  Company Number: DSA_28127_2006

PATIENT
  Age: 37 Year
  Sex: Female

DRUGS (4)
  1. TAVOR                         /00273201/ [Suspect]
     Dates: start: 20060511, end: 20060511
  2. AMINEURIN [Suspect]
     Dates: start: 20060511, end: 20060511
  3. DOMINAL [Suspect]
     Dates: start: 20060511, end: 20060511
  4. STILNOX                 /00914901/ [Suspect]
     Dates: start: 20060511, end: 20060511

REACTIONS (4)
  - BLOOD POTASSIUM DECREASED [None]
  - MULTIPLE DRUG OVERDOSE [None]
  - SOMNOLENCE [None]
  - SUICIDE ATTEMPT [None]
